FAERS Safety Report 9063726 (Version 2)
Quarter: 2013Q1

REPORT INFORMATION
  Report Type: Report from Study
  Country: JP (occurrence: JP)
  Receive Date: 20130213
  Receipt Date: 20130328
  Transmission Date: 20140127
  Serious: Yes (Hospitalization, Other)
  Sender: FDA-Public Use
  Company Number: JP-ACTELION-A-CH2012-64387

PATIENT
  Age: 66 Year
  Sex: Male
  Weight: 74.5 kg

DRUGS (10)
  1. TRACLEER [Suspect]
     Indication: PULMONARY ARTERIAL HYPERTENSION
     Dosage: 125 MG, BID
     Route: 048
     Dates: start: 20101213, end: 20110502
  2. TRACLEER [Suspect]
     Dosage: 62.5 MG, BID
     Route: 048
     Dates: start: 20101115, end: 20101212
  3. TRACLEER [Suspect]
     Dosage: 125 MG, BID
     Route: 048
     Dates: start: 20110514, end: 20110527
  4. TRACLEER [Suspect]
     Dosage: 62.5 MG, QD
     Route: 048
     Dates: start: 20110530, end: 20110605
  5. TRACLEER [Suspect]
     Dosage: UNK
     Route: 048
     Dates: start: 20110606
  6. BERAPROST SODIUM [Concomitant]
  7. WARFARIN POTASSIUM [Concomitant]
  8. OMEPRAZOLE [Concomitant]
  9. ZOLPIDEM TARTRATE [Concomitant]
  10. OXYGEN [Concomitant]

REACTIONS (7)
  - Appendicitis [Recovered/Resolved]
  - Appendicectomy [Recovered/Resolved]
  - Dyspnoea [Recovering/Resolving]
  - Oedema [Recovering/Resolving]
  - Hepatic function abnormal [Recovering/Resolving]
  - Aspartate aminotransferase increased [Recovering/Resolving]
  - Alanine aminotransferase increased [Recovering/Resolving]
